FAERS Safety Report 8453480-9 (Version None)
Quarter: 2012Q2

REPORT INFORMATION
  Report Type: 
  Country: None (occurrence: None)
  Receive Date: 20120620
  Receipt Date: 20120518
  Transmission Date: 20120825
  Serious: No
  Sender: FDA-Public Use
  Company Number: US-VERTEX PHARMACEUTICALS INC.-AE-2012-007421

PATIENT
  Sex: Female

DRUGS (3)
  1. RIBAVIRIN [Concomitant]
     Indication: HEPATITIS C
     Dates: start: 20120321
  2. INCIVEK [Suspect]
     Indication: HEPATITIS C
     Dates: start: 20120321
  3. PEGASYS [Concomitant]
     Indication: HEPATITIS C
     Dates: start: 20120321

REACTIONS (6)
  - STOMATITIS [None]
  - RASH GENERALISED [None]
  - SWELLING FACE [None]
  - EYE SWELLING [None]
  - THROAT TIGHTNESS [None]
  - DYSPHAGIA [None]
